FAERS Safety Report 5117112-X (Version None)
Quarter: 2006Q3

REPORT INFORMATION
  Report Type: 
  Country: None (occurrence: None)
  Receive Date: 20060926
  Receipt Date: 20060914
  Transmission Date: 20061208
  Serious: Yes (Hospitalization)
  Sender: FDA-Public Use
  Company Number: US200608006038

PATIENT
  Age: 58 Year
  Sex: Female
  Weight: 113.4 kg

DRUGS (1)
  1. HUMULIN 70/30 [Suspect]
     Indication: DIABETES MELLITUS
     Dates: start: 20010629

REACTIONS (6)
  - BILIARY CIRRHOSIS PRIMARY [None]
  - BLOOD GLUCOSE INCREASED [None]
  - CONDITION AGGRAVATED [None]
  - LIVER TRANSPLANT [None]
  - OBESITY [None]
  - PHARMACEUTICAL PRODUCT COMPLAINT [None]
